FAERS Safety Report 10213442 (Version 1)
Quarter: 2014Q2

REPORT INFORMATION
  Report Type: Spontaneous
  Country: US (occurrence: None)
  Receive Date: 20140530
  Receipt Date: 20140530
  Transmission Date: 20141212
  Serious: Yes (Hospitalization, Other)
  Sender: FDA-Public Use
  Company Number: None

PATIENT
  Age: 67 Year
  Sex: Male

DRUGS (5)
  1. XTANDI 40MG [Suspect]
     Indication: PROSTATE CANCER
     Dosage: 160MG, QD, BY MOUTH
     Route: 048
     Dates: start: 20130820, end: 20131212
  2. MORPHINE [Concomitant]
  3. OXYCODONE [Concomitant]
  4. LEVETIRACETAM [Concomitant]
  5. CARVEDILOL [Concomitant]

REACTIONS (2)
  - Cerebrovascular accident [None]
  - Convulsion [None]
